FAERS Safety Report 7626394-1 (Version None)
Quarter: 2011Q3

REPORT INFORMATION
  Report Type: 
  Country: None (occurrence: None)
  Receive Date: 20110721
  Receipt Date: 20110711
  Transmission Date: 20111222
  Serious: Yes (Hospitalization)
  Sender: FDA-Public Use
  Company Number: US-BAXTER-2011BH021179

PATIENT
  Age: 61 Year
  Sex: Male

DRUGS (2)
  1. DIANEAL [Suspect]
     Indication: PERITONEAL DIALYSIS
     Route: 033
     Dates: start: 20060101
  2. ANTI-SEIZURE MEDICATION [Concomitant]
     Indication: CONVULSION

REACTIONS (3)
  - CONVULSION [None]
  - HEART RATE INCREASED [None]
  - BLOOD PRESSURE INCREASED [None]
